FAERS Safety Report 9886390 (Version 2)
Quarter: 2014Q2

REPORT INFORMATION
  Report Type: Spontaneous
  Country: IT (occurrence: IT)
  Receive Date: 20140210
  Receipt Date: 20140408
  Transmission Date: 20141212
  Serious: Yes (Hospitalization)
  Sender: FDA-Public Use
  Company Number: IT-PFIZER INC-2014035565

PATIENT
  Age: 33 Year
  Sex: Female

DRUGS (2)
  1. DEPO-MEDROL [Suspect]
     Dosage: 1 DF, DAILY
     Route: 048
     Dates: start: 20140120, end: 20140126
  2. BRUFEN [Suspect]
     Dosage: 1 DF, DAILY
     Route: 048

REACTIONS (4)
  - Incorrect route of drug administration [Recovered/Resolved]
  - Abdominal pain upper [Recovering/Resolving]
  - Nausea [Recovering/Resolving]
  - Vomiting [Recovering/Resolving]
